FAERS Safety Report 6708911-9 (Version None)
Quarter: 2010Q2

REPORT INFORMATION
  Report Type: 
  Country: None (occurrence: None)
  Receive Date: 20100428
  Receipt Date: 20100414
  Transmission Date: 20101027
  Serious: Yes (Hospitalization)
  Sender: FDA-Public Use
  Company Number: SPV1-2010-00702

PATIENT
  Age: 42 Year
  Sex: Male

DRUGS (1)
  1. ELAPRASE [Suspect]
     Indication: MUCOPOLYSACCHARIDOSIS II
     Dosage: 42 MG, 1X/WEEK; IV DRIP
     Route: 041
     Dates: start: 20061108

REACTIONS (3)
  - ASTHMA [None]
  - DISEASE PROGRESSION [None]
  - PNEUMONIA [None]
